FAERS Safety Report 6042060-0 (Version None)
Quarter: 2009Q1

REPORT INFORMATION
  Report Type: 
  Country: None (occurrence: None)
  Receive Date: 20090116
  Receipt Date: 20080421
  Transmission Date: 20090719
  Serious: No
  Sender: FDA-Public Use
  Company Number: US-BAYER-200811878BCC

PATIENT
  Age: 65 Year
  Sex: Female
  Weight: 50 kg

DRUGS (1)
  1. ALEVE [Suspect]
     Indication: ARTHRITIS
     Dosage: AS USED: 440/220 MG  UNIT DOSE: 220 MG
     Dates: start: 20080411, end: 20080421

REACTIONS (1)
  - ARTHRALGIA [None]
